FAERS Safety Report 14783693 (Version 3)
Quarter: 2018Q4

REPORT INFORMATION
  Report Type: Spontaneous
  Country: CN (occurrence: CN)
  Receive Date: 20180420
  Receipt Date: 20181109
  Transmission Date: 20190204
  Serious: Yes (Other)
  Sender: FDA-Public Use
  Company Number: CN-JNJFOC-20180420426

PATIENT
  Age: 3 Year
  Sex: Female

DRUGS (1)
  1. VERMOX [Suspect]
     Active Substance: MEBENDAZOLE
     Indication: GASTROENTERITIS VIRAL
     Route: 048
     Dates: start: 201803

REACTIONS (3)
  - Myocardial necrosis marker increased [Recovered/Resolved]
  - Fatigue [Not Recovered/Not Resolved]
  - Abnormal faeces [Recovered/Resolved]

NARRATIVE: CASE EVENT DATE: 2018
